FAERS Safety Report 16045210 (Version 1)
Quarter: 2019Q1

REPORT INFORMATION
  Report Type: Spontaneous
  Country: US (occurrence: US)
  Receive Date: 20190307
  Receipt Date: 20190307
  Transmission Date: 20190418
  Serious: No
  Sender: FDA-Public Use
  Company Number: US-SHIRE-US201903575

PATIENT
  Sex: Male
  Weight: 94.1 kg

DRUGS (1)
  1. ADVATE [Suspect]
     Active Substance: ANTIHEMOPHILIC FACTOR, HUMAN RECOMBINANT
     Indication: HAEMORRHAGE
     Dosage: 4100 INTERNATIONAL UNIT, 3X A WEEK
     Route: 065

REACTIONS (2)
  - Underdose [Unknown]
  - Weight increased [Unknown]
